FAERS Safety Report 23195236 (Version 1)
Quarter: 2023Q4

REPORT INFORMATION
  Report Type: Spontaneous
  Country: US (occurrence: US)
  Receive Date: 20231117
  Receipt Date: 20231117
  Transmission Date: 20240110
  Serious: Yes (Hospitalization, Other)
  Sender: FDA-Public Use
  Company Number: US-ALKEM LABORATORIES LIMITED-US-ALKEM-2023-02396

PATIENT
  Age: 49 Year
  Sex: Female

DRUGS (25)
  1. CLOZAPINE [Interacting]
     Active Substance: CLOZAPINE
     Indication: Schizoaffective disorder bipolar type
     Dosage: 25 MILLIGRAM, HS
     Route: 065
  2. CLOZAPINE [Interacting]
     Active Substance: CLOZAPINE
     Dosage: 50 MILLIGRAM, HS
     Route: 065
  3. CLOZAPINE [Interacting]
     Active Substance: CLOZAPINE
     Dosage: 100 MILLIGRAM, HS
     Route: 065
  4. CLOZAPINE [Interacting]
     Active Substance: CLOZAPINE
     Dosage: 150 MILLIGRAM, HS
     Route: 065
  5. CLOZAPINE [Interacting]
     Active Substance: CLOZAPINE
     Dosage: 200 MILLIGRAM, HS
     Route: 065
  6. CLOZAPINE [Interacting]
     Active Substance: CLOZAPINE
     Dosage: 300 MILLIGRAM, HS
     Route: 065
  7. CLOZAPINE [Interacting]
     Active Substance: CLOZAPINE
     Dosage: 400 MILLIGRAM, HS
     Route: 065
  8. CLOZAPINE [Interacting]
     Active Substance: CLOZAPINE
     Dosage: 500 MILLIGRAM, HS
     Route: 065
  9. OLANZAPINE [Suspect]
     Active Substance: OLANZAPINE
     Indication: Schizoaffective disorder bipolar type
     Dosage: 10 MILLIGRAM, TRIGGERED DOSE
     Route: 030
  10. HALOPERIDOL [Suspect]
     Active Substance: HALOPERIDOL
     Indication: Agitation
     Dosage: 2 MILLIGRAM
     Route: 042
  11. HALOPERIDOL [Suspect]
     Active Substance: HALOPERIDOL
     Indication: Aggression
     Dosage: 4 MILLIGRAM
     Route: 042
  12. HALOPERIDOL [Suspect]
     Active Substance: HALOPERIDOL
     Dosage: 2.5 MILLIGRAM, QD, IN THE AFTERNOON
  13. HALOPERIDOL [Suspect]
     Active Substance: HALOPERIDOL
     Dosage: 5 MILLIGRAM, HS
     Route: 065
  14. VALPROIC ACID [Suspect]
     Active Substance: VALPROIC ACID
     Indication: Schizoaffective disorder bipolar type
     Dosage: 1250 MILLIGRAM, HS
     Route: 065
  15. VALPROIC ACID [Suspect]
     Active Substance: VALPROIC ACID
     Dosage: 500 MILLIGRAM, BID
     Route: 065
  16. VALPROIC ACID [Suspect]
     Active Substance: VALPROIC ACID
     Dosage: 500 MILLIGRAM, QD, IN THE MORNING
     Route: 065
  17. VALPROIC ACID [Suspect]
     Active Substance: VALPROIC ACID
     Dosage: 500 MILLIGRAM, HS
     Route: 065
  18. VALPROIC ACID [Suspect]
     Active Substance: VALPROIC ACID
     Dosage: 1000 MILLIGRAM, HS, RESTARTED DOSE
     Route: 065
  19. BENZTROPINE [Concomitant]
     Active Substance: BENZTROPINE
     Indication: Schizoaffective disorder bipolar type
     Dosage: 2 MILLIGRAM, BID
     Route: 065
  20. BENZTROPINE [Concomitant]
     Active Substance: BENZTROPINE
     Dosage: 1 MILLIGRAM, BID
     Route: 065
  21. RISPERDAL CONSTA [Concomitant]
     Active Substance: RISPERIDONE
     Indication: Schizoaffective disorder bipolar type
     Dosage: 50 MILLIGRAM, ONCE IN 2 WEEKS  LONG-ACTING INJECTABLE
     Route: 030
  22. RISPERDAL CONSTA [Concomitant]
     Active Substance: RISPERIDONE
     Dosage: 4 MILLIGRAM, HS
     Route: 065
  23. RISPERDAL CONSTA [Concomitant]
     Active Substance: RISPERIDONE
     Dosage: 2 MILLIGRAM, BID
     Route: 065
  24. RISPERDAL CONSTA [Concomitant]
     Active Substance: RISPERIDONE
     Dosage: 1 MILLIGRAM, BID, TAPERED DOSE
     Route: 065
  25. SERTRALINE [Concomitant]
     Active Substance: SERTRALINE HYDROCHLORIDE
     Indication: Schizoaffective disorder bipolar type
     Dosage: 100 MILLIGRAM, QD
     Route: 065

REACTIONS (12)
  - Sepsis [Unknown]
  - Pneumonia aspiration [Unknown]
  - Myocarditis [Unknown]
  - Atrial fibrillation [Unknown]
  - Loss of consciousness [Unknown]
  - Cardiac arrest [Unknown]
  - Torsade de pointes [Unknown]
  - Hypotension [Unknown]
  - Tachypnoea [Unknown]
  - Drug level increased [Unknown]
  - Drug interaction [Unknown]
  - Therapy partial responder [Unknown]
